FAERS Safety Report 21492664 (Version 1)
Quarter: 2022Q4

REPORT INFORMATION
  Report Type: Report from Study
  Country: US (occurrence: US)
  Receive Date: 20221021
  Receipt Date: 20221021
  Transmission Date: 20230113
  Serious: No
  Sender: FDA-Public Use
  Company Number: US-ABBVIE-4144139

PATIENT
  Age: 64 Year
  Sex: Male

DRUGS (2)
  1. HUMIRA [Suspect]
     Active Substance: ADALIMUMAB
     Indication: Colitis ulcerative
     Dosage: CF
     Route: 058
  2. Moderna [Concomitant]
     Indication: COVID-19 immunisation
     Dosage: COVID VACCINE DOSE

REACTIONS (1)
  - Mucosal disorder [Recovering/Resolving]

NARRATIVE: CASE EVENT DATE: 20220901
